FAERS Safety Report 7802117-8 (Version None)
Quarter: 2011Q4

REPORT INFORMATION
  Report Type: 
  Country: None (occurrence: None)
  Receive Date: 20111007
  Receipt Date: 20110923
  Transmission Date: 20120403
  Serious: Yes (Hospitalization, Other)
  Sender: FDA-Public Use
  Company Number: DE-AMGEN-DEUCT2011047258

PATIENT
  Age: 45 Year
  Sex: Female
  Weight: 101 kg

DRUGS (4)
  1. ETANERCEPT [Suspect]
     Indication: PSORIASIS
     Dosage: 50 MG, 2 TIMES/WK
     Route: 058
     Dates: start: 20101201, end: 20110401
  2. DOVOBET [Concomitant]
     Indication: PSORIASIS
     Dosage: UNK
     Dates: start: 20091001
  3. CALCIPOTRIENE [Concomitant]
     Indication: PSORIASIS
     Dosage: UNK
     Dates: start: 20091001
  4. ELOSALIC [Concomitant]
     Indication: PSORIASIS
     Dosage: UNK
     Dates: start: 20091001

REACTIONS (4)
  - RENAL CELL CARCINOMA [None]
  - INFECTION [None]
  - GASTROINTESTINAL INFECTION [None]
  - INJECTION SITE PAIN [None]
